FAERS Safety Report 10380961 (Version 1)
Quarter: 2014Q3

REPORT INFORMATION
  Report Type: Spontaneous
  Country: US (occurrence: None)
  Receive Date: 20140808
  Receipt Date: 20140808
  Transmission Date: 20150326
  Serious: Yes (Other)
  Sender: FDA-Public Use
  Company Number: VAL_03286_2014

PATIENT
  Age: 5 Year
  Sex: Female

DRUGS (4)
  1. VITAMIN D NOS (UNKNOWN) [Concomitant]
  2. MULTIVITAMIN /02358601/ (UNKNOWN) [Concomitant]
  3. CALCITRIOL. [Suspect]
     Active Substance: CALCITRIOL
     Indication: HYPOPHOSPHATAEMIC RICKETS
     Route: 048
  4. K-PHOS (UNKNOWN) [Concomitant]

REACTIONS (7)
  - Papule [None]
  - Arthropod bite [None]
  - Haemangioma of skin [None]
  - Pain in extremity [None]
  - Dry skin [None]
  - Haemangioma [None]
  - Erythema [None]

NARRATIVE: CASE EVENT DATE: 20111118
